FAERS Safety Report 20176801 (Version 1)
Quarter: 2021Q4

REPORT INFORMATION
  Report Type: Spontaneous
  Country: US (occurrence: None)
  Receive Date: 20211212
  Receipt Date: 20211212
  Transmission Date: 20220303
  Serious: Yes (Hospitalization)
  Sender: FDA-Public Use
  Company Number: None

PATIENT
  Age: 48 Year
  Sex: Female
  Weight: 125 kg

DRUGS (2)
  1. REGEN-COV [Suspect]
     Active Substance: CASIRIVIMAB\IMDEVIMAB
     Indication: COVID-19
     Dosage: FREQUENCY : ONCE;?
     Route: 041
     Dates: start: 20211207
  2. Azithromycin (Z-pak [Concomitant]
     Dates: start: 20211204, end: 20211208

REACTIONS (6)
  - Sepsis [None]
  - Tachycardia [None]
  - Pyrexia [None]
  - Fibrin D dimer increased [None]
  - Lactic acidosis [None]
  - Dyspnoea [None]

NARRATIVE: CASE EVENT DATE: 20211212
